FAERS Safety Report 6103686-9 (Version None)
Quarter: 2009Q1

REPORT INFORMATION
  Report Type: 
  Country: None (occurrence: None)
  Receive Date: 20090305
  Receipt Date: 20090226
  Transmission Date: 20090719
  Serious: Yes (Hospitalization)
  Sender: FDA-Public Use
  Company Number: FR-AVENTIS-200910944EU

PATIENT
  Age: 87 Year
  Sex: Female

DRUGS (9)
  1. FLUDEX                             /00340101/ [Suspect]
     Route: 048
  2. LOXEN [Suspect]
  3. ADANCOR [Suspect]
     Route: 048
  4. LEVOTHYROX [Concomitant]
  5. ATHYMIL [Concomitant]
  6. DUPHALAC [Concomitant]
  7. SIMVASTATIN [Concomitant]
  8. DAFALGAN                           /00020001/ [Concomitant]
  9. LOVENOX [Concomitant]

REACTIONS (4)
  - FALL [None]
  - FEMUR FRACTURE [None]
  - HYPOTENSION [None]
  - LUNG INFECTION [None]
